FAERS Safety Report 5663355-6 (Version None)
Quarter: 2008Q1

REPORT INFORMATION
  Report Type: 
  Country: None (occurrence: None)
  Receive Date: 20080313
  Receipt Date: 20080304
  Transmission Date: 20080703
  Serious: Yes (Other)
  Sender: FDA-Public Use
  Company Number: US-ELI_LILLY_AND_COMPANY-US200802004557

PATIENT
  Sex: Male
  Weight: 101.13 kg

DRUGS (11)
  1. BYETTA [Suspect]
     Dosage: 5 UG, 2/D
     Route: 058
     Dates: start: 20040101, end: 20040101
  2. BYETTA [Suspect]
     Dosage: 10 UG, 2/D
     Route: 058
     Dates: start: 20040101, end: 20071101
  3. PROZAC [Concomitant]
     Indication: DEPRESSION
     Dosage: 20 MG, UNK
     Route: 065
     Dates: start: 20050101, end: 20050101
  4. AMARYL [Concomitant]
     Dosage: 2 MG, UNKNOWN
     Route: 048
     Dates: start: 20000101
  5. GLUCOPHAGE [Concomitant]
     Dosage: 500 MG, 4/D
     Route: 048
     Dates: start: 20000101
  6. NIASPAN [Concomitant]
     Indication: LIPIDS
     Dosage: 2 G, DAILY (1/D)
     Route: 048
     Dates: start: 20000101
  7. ACCUPRIL [Concomitant]
     Indication: HYPERTENSION
     Dosage: 10 MG, DAILY (1/D)
     Route: 048
     Dates: start: 20000101
  8. LIPITOR [Concomitant]
     Indication: LIPIDS
     Dosage: 20 MG, UNK
     Route: 048
     Dates: start: 20000101
  9. ASPIRIN [Concomitant]
     Indication: PROPHYLAXIS
     Dosage: 81 MG, DAILY (1/D)
     Route: 048
     Dates: start: 20000101
  10. ACTOS [Concomitant]
     Dosage: 45 MG, 3/W
     Route: 048
     Dates: start: 20000101
  11. CELEBREX [Concomitant]
     Indication: PAIN
     Dosage: 200 MG, UNK
     Route: 065
     Dates: start: 20060101, end: 20060101

REACTIONS (2)
  - PANCREATITIS [None]
  - WEIGHT DECREASED [None]
